FAERS Safety Report 10873522 (Version 1)
Quarter: 2015Q1

REPORT INFORMATION
  Report Type: Spontaneous
  Country: AT (occurrence: AT)
  Receive Date: 20150227
  Receipt Date: 20150227
  Transmission Date: 20150721
  Serious: Yes (Hospitalization)
  Sender: FDA-Public Use
  Company Number: AT-SA-2015SA021741

PATIENT
  Sex: Female

DRUGS (5)
  1. FOLSAN [Concomitant]
     Active Substance: FOLIC ACID
  2. RIFOLDIN [Suspect]
     Active Substance: RIFAMPIN
     Indication: PROPHYLAXIS
     Route: 065
     Dates: start: 20131011, end: 20140408
  3. OMEPRAZOLE. [Concomitant]
     Active Substance: OMEPRAZOLE
  4. ENBREL [Suspect]
     Active Substance: ETANERCEPT
     Indication: RHEUMATOID ARTHRITIS
     Route: 058
     Dates: start: 20131002, end: 20140408
  5. METHOTREXATE (METHOTREXATE SODIUM) [Concomitant]
     Active Substance: METHOTREXATE SODIUM

REACTIONS (3)
  - Central nervous system lesion [Recovering/Resolving]
  - Clinically isolated syndrome [Recovering/Resolving]
  - Demyelination [Recovering/Resolving]
